FAERS Safety Report 4950821-1 (Version None)
Quarter: 2006Q1

REPORT INFORMATION
  Report Type: 
  Country: None (occurrence: None)
  Receive Date: 20060322
  Receipt Date: 20060314
  Transmission Date: 20060701
  Serious: Yes (Other)
  Sender: FDA-Public Use
  Company Number: 2006CG00508

PATIENT
  Age: 75 Year
  Sex: Male

DRUGS (2)
  1. OMEPRAZOLE [Suspect]
     Indication: GASTROOESOPHAGEAL REFLUX DISEASE
     Route: 048
     Dates: start: 20050101
  2. FLUDEX [Suspect]
     Indication: HYPERTENSION

REACTIONS (8)
  - ANOREXIA [None]
  - ASTHENIA [None]
  - GAMMA-GLUTAMYLTRANSFERASE INCREASED [None]
  - HEPATIC LESION [None]
  - HEPATIC NEOPLASM [None]
  - HEPATOMEGALY [None]
  - TRANSAMINASES INCREASED [None]
  - WEIGHT DECREASED [None]
